FAERS Safety Report 15053102 (Version 1)
Quarter: 2018Q2

REPORT INFORMATION
  Report Type: Spontaneous
  Country: US (occurrence: US)
  Receive Date: 20180622
  Receipt Date: 20180622
  Transmission Date: 20180711
  Serious: No
  Sender: FDA-Public Use
  Company Number: US-BAYER-2018-116722

PATIENT
  Age: 41 Year

DRUGS (1)
  1. GADAVIST [Suspect]
     Active Substance: GADOBUTROL
     Dosage: 30 ML, ONCE
     Dates: start: 20180613, end: 20180613

REACTIONS (1)
  - Vomiting [None]

NARRATIVE: CASE EVENT DATE: 20180613
